FAERS Safety Report 11976412 (Version 2)
Quarter: 2016Q1

REPORT INFORMATION
  Report Type: Spontaneous
  Country: US (occurrence: US)
  Receive Date: 20160129
  Receipt Date: 20160129
  Transmission Date: 20160526
  Serious: Yes (Other)
  Sender: FDA-Public Use
  Company Number: US-ACTAVIS-2016-01483

PATIENT
  Age: 30 Year
  Sex: Female

DRUGS (6)
  1. LORAZEPAM (WATSON LABORATORIES) [Suspect]
     Active Substance: LORAZEPAM
     Indication: AGITATION
     Dosage: 2 MG, Q6H (AS NEEDED)
     Route: 065
  2. HALOPERIDOL (WATSON LABORATORIES) [Suspect]
     Active Substance: HALOPERIDOL
     Dosage: 60 MG, DAILY
     Route: 051
  3. CARBAMAZEPINE (AELLC) [Suspect]
     Active Substance: CARBAMAZEPINE
     Indication: SCHIZOPHRENIA
     Dosage: 400 MG, DAILY
     Route: 065
  4. BENZTROPINE [Suspect]
     Active Substance: BENZTROPINE
     Indication: SCHIZOPHRENIA
     Dosage: 2 MG, DAILY
     Route: 065
  5. LITHIUM CITRATE (UNKNOWN) [Suspect]
     Active Substance: LITHIUM CITRATE
     Indication: SCHIZOPHRENIA
     Dosage: 600-1500 MG, DAILY
     Route: 065
  6. HALOPERIDOL (WATSON LABORATORIES) [Suspect]
     Active Substance: HALOPERIDOL
     Indication: SCHIZOPHRENIA
     Dosage: 30 TO 80 MG, DAILY
     Route: 051

REACTIONS (2)
  - Neuroleptic malignant syndrome [Recovering/Resolving]
  - Diarrhoea [Unknown]
